FAERS Safety Report 8802093 (Version 1)
Quarter: 2012Q4

REPORT INFORMATION
  Report Type: 
  Country: IT (occurrence: IT)
  Receive Date: 20120921
  Receipt Date: 20120921
  Transmission Date: 20130627
  Serious: Yes (Hospitalization)
  Sender: FDA-Public Use
  Company Number: IT-BAYER-2012-095743

PATIENT
  Age: 50 Year
  Sex: Female

DRUGS (1)
  1. DIENOGEST [Suspect]
     Indication: OVARIAN CYST
     Dosage: Daily dose 1 DF
     Route: 048
     Dates: start: 20070827, end: 20120827

REACTIONS (2)
  - Abdominal pain upper [Recovering/Resolving]
  - Diarrhoea [Recovering/Resolving]
